FAERS Safety Report 7137089-5 (Version None)
Quarter: 2010Q4

REPORT INFORMATION
  Report Type: 
  Country: None (occurrence: None)
  Receive Date: 20101206
  Receipt Date: 20091224
  Transmission Date: 20110411
  Serious: Yes (Death, Hospitalization)
  Sender: FDA-Public Use
  Company Number: US-ACTELION-A-NJ2009-28092

PATIENT
  Sex: Female

DRUGS (5)
  1. BOSENTAN TABLET 125 MG US [Suspect]
     Indication: PULMONARY ARTERIAL HYPERTENSION
     Dosage: 125 MG, BID
     Route: 048
     Dates: start: 20090901, end: 20091013
  2. BOSENTAN TABLET 125 MG US [Suspect]
     Dates: start: 20090806, end: 20090901
  3. BOSENTAN TABLET 125 MG US [Suspect]
     Dosage: UNK
     Dates: start: 20090101, end: 20091228
  4. BOSENTAN TABLET 125 MG US [Suspect]
     Dosage: UNK
     Route: 048
     Dates: start: 20090601
  5. TADALAFIL [Concomitant]

REACTIONS (5)
  - DEATH [None]
  - FALL [None]
  - FATIGUE [None]
  - OEDEMA PERIPHERAL [None]
  - OXYGEN SATURATION DECREASED [None]
